FAERS Safety Report 11421502 (Version 1)
Quarter: 2015Q3

REPORT INFORMATION
  Report Type: Spontaneous
  Country: NZ (occurrence: NZ)
  Receive Date: 20150826
  Receipt Date: 20150826
  Transmission Date: 20151125
  Serious: Yes (Other)
  Sender: FDA-Public Use
  Company Number: PHHY2015NZ100134

PATIENT
  Age: 58 Year
  Sex: Male

DRUGS (2)
  1. SANDOSTATIN LAR DEPOT [Suspect]
     Active Substance: OCTREOTIDE ACETATE
     Indication: NEUROENDOCRINE TUMOUR
     Route: 065
  2. SANDOSTATIN LAR DEPOT [Suspect]
     Active Substance: OCTREOTIDE ACETATE
     Indication: CARCINOID SYNDROME
     Dosage: 40 MG
     Route: 065

REACTIONS (15)
  - Pulse abnormal [Unknown]
  - Dyspnoea [Unknown]
  - Tricuspid valve incompetence [Unknown]
  - Diarrhoea [Recovered/Resolved]
  - Performance status decreased [Unknown]
  - Recurrent cancer [Unknown]
  - Abdominal discomfort [Unknown]
  - Carcinoid syndrome [Unknown]
  - Flushing [Unknown]
  - Oedema peripheral [Unknown]
  - Pulmonary valve incompetence [Unknown]
  - Weight decreased [Unknown]
  - Dilatation ventricular [Unknown]
  - Hepatomegaly [Recovering/Resolving]
  - Abdominal pain [Recovered/Resolved]
